FAERS Safety Report 5300358-5 (Version None)
Quarter: 2007Q2

REPORT INFORMATION
  Report Type: 
  Country: None (occurrence: None)
  Receive Date: 20070413
  Receipt Date: 20070413
  Transmission Date: 20071010
  Serious: Yes (Other)
  Sender: FDA-Public Use
  Company Number: None

PATIENT
  Age: 41 Year
  Sex: Female
  Weight: 90.7194 kg

DRUGS (1)
  1. ZELNORM [Suspect]
     Indication: BOWEL MOVEMENT IRREGULARITY
     Dosage: 2 PILLS DAILY PO
     Route: 048
     Dates: start: 20001001, end: 20070131

REACTIONS (4)
  - DIARRHOEA [None]
  - HAEMATOCHEZIA [None]
  - HEADACHE [None]
  - HEART RATE IRREGULAR [None]
